FAERS Safety Report 6806359-X (Version None)
Quarter: 2010Q2

REPORT INFORMATION
  Report Type: 
  Country: None (occurrence: None)
  Receive Date: 20100628
  Receipt Date: 20100628
  Transmission Date: 20101027
  Serious: Yes (Hospitalization)
  Sender: FDA-Public Use
  Company Number: None

PATIENT
  Age: 22 Year
  Sex: Female
  Weight: 45.3597 kg

DRUGS (2)
  1. YAZ [Suspect]
     Indication: DEPRESSION
     Dosage: 3MG/.02MG DAILY PO
     Route: 048
     Dates: start: 20070101, end: 20100601
  2. YAZ [Suspect]
     Indication: PREMENSTRUAL SYNDROME
     Dosage: 3MG/.02MG DAILY PO
     Route: 048
     Dates: start: 20070101, end: 20100601

REACTIONS (2)
  - ANAESTHETIC COMPLICATION [None]
  - CHOLECYSTECTOMY [None]
